FAERS Safety Report 21790240 (Version 1)
Quarter: 2022Q4

REPORT INFORMATION
  Report Type: Spontaneous
  Country: DE (occurrence: DE)
  Receive Date: 20221228
  Receipt Date: 20221228
  Transmission Date: 20230113
  Serious: Yes (Life-Threatening, Hospitalization, Other)
  Sender: FDA-Public Use
  Company Number: None

PATIENT
  Age: 80 Year
  Sex: Female

DRUGS (5)
  1. QUETIAPINE [Suspect]
     Active Substance: QUETIAPINE
     Indication: Sleep disorder
     Dosage: UNIT DOSE : 25 MG, FREQUENCY TIME : 1 DAYS, THERAPY END DATE : NASK
     Route: 065
     Dates: start: 20221201
  2. QUETIAPINE [Suspect]
     Active Substance: QUETIAPINE
     Indication: Depression
  3. KISQALI [Concomitant]
     Active Substance: RIBOCICLIB
     Indication: Breast cancer
     Dosage: UNIT DOSE : 600 MG, FREQUENCY TIME : 1 DAYS
     Route: 065
     Dates: start: 20221001
  4. MEROPENEM [Concomitant]
     Active Substance: MEROPENEM
     Indication: Pneumonia
     Dosage: UNIT DOSE : 3 GRAM, FREQUENCY TIME : 1 DAYS
     Route: 065
     Dates: start: 20221127
  5. LETROZOLE [Concomitant]
     Active Substance: LETROZOLE
     Indication: Breast cancer
     Dosage: UNIT DOSE : 2 MG, FREQUENCY TIME : 1 DAYS
     Route: 065
     Dates: start: 20221001

REACTIONS (3)
  - Interstitial lung disease [Recovering/Resolving]
  - Dyspnoea [Recovering/Resolving]
  - Rales [Recovering/Resolving]

NARRATIVE: CASE EVENT DATE: 20221202
